FAERS Safety Report 13624699 (Version 2)
Quarter: 2018Q3

REPORT INFORMATION
  Report Type: Spontaneous
  Country: US (occurrence: US)
  Receive Date: 20170608
  Receipt Date: 20180827
  Transmission Date: 20181010
  Serious: No
  Sender: FDA-Public Use
  Company Number: US-PFIZER INC-2017249265

PATIENT
  Age: 74 Year
  Sex: Female

DRUGS (9)
  1. ACIDOPHILUS [Concomitant]
     Active Substance: LACTOBACILLUS ACIDOPHILUS
     Dosage: UNK
  2. ENSURE ACTIVE HIGH PROTEIN [Concomitant]
     Dosage: UNK
  3. IBUPROFEN. [Concomitant]
     Active Substance: IBUPROFEN
     Dosage: UNK
  4. IBRANCE [Suspect]
     Active Substance: PALBOCICLIB
     Indication: BREAST CANCER FEMALE
     Dosage: 125 MG, CYCLIC (DAILY FOR 21 DAYS)
     Dates: start: 20170517
  5. GLUCOSAMINE SULFATE COMPLEX [Concomitant]
     Dosage: UNK
  6. LUTEIN [Concomitant]
     Active Substance: LUTEIN
     Dosage: UNK
  7. CALCIUM CARBONATE. [Concomitant]
     Active Substance: CALCIUM CARBONATE
     Dosage: UNK
  8. COLACE [Concomitant]
     Active Substance: DOCUSATE SODIUM
     Dosage: UNK
  9. ALPRAZOLAM. [Concomitant]
     Active Substance: ALPRAZOLAM
     Dosage: UNK

REACTIONS (9)
  - Sensation of foreign body [Unknown]
  - Decreased appetite [Unknown]
  - Fatigue [Unknown]
  - Oropharyngeal pain [Unknown]
  - Nausea [Unknown]
  - Dysphagia [Unknown]
  - Stomatitis [Unknown]
  - Asthenia [Unknown]
  - Localised infection [Unknown]

NARRATIVE: CASE EVENT DATE: 20170603
